FAERS Safety Report 5290806-1 (Version None)
Quarter: 2007Q2

REPORT INFORMATION
  Report Type: 
  Country: None (occurrence: None)
  Receive Date: 20070409
  Receipt Date: 20070404
  Transmission Date: 20071010
  Serious: Yes (Hospitalization, Disabling, Other)
  Sender: FDA-Public Use
  Company Number: US-MERCK-0509USA04014

PATIENT
  Age: 62 Year
  Sex: Female
  Weight: 86 kg

DRUGS (31)
  1. FOSAMAX [Suspect]
     Indication: OSTEOPOROSIS
     Route: 048
     Dates: start: 19980709, end: 20010509
  2. FOSAMAX [Suspect]
     Route: 048
     Dates: start: 20010509, end: 20060901
  3. FOSAMAX [Suspect]
     Indication: OSTEOARTHRITIS
     Route: 048
     Dates: start: 19980709, end: 20010509
  4. FOSAMAX [Suspect]
     Route: 048
     Dates: start: 20010509, end: 20060901
  5. DELTASONE [Concomitant]
     Route: 065
  6. RELAFEN [Concomitant]
     Route: 065
  7. DARVOCET-N 100 [Concomitant]
     Route: 065
  8. LASIX [Concomitant]
     Route: 065
     Dates: end: 20010201
  9. LASIX [Concomitant]
     Route: 065
     Dates: start: 20010201
  10. POTASSIUM CHLORIDE [Concomitant]
     Route: 065
     Dates: end: 20010201
  11. POTASSIUM CHLORIDE [Concomitant]
     Route: 065
     Dates: start: 20010201
  12. ARAVA [Concomitant]
     Route: 065
  13. DIOVAN [Concomitant]
     Route: 065
  14. ZIAC [Concomitant]
     Route: 065
  15. PREMPRO [Concomitant]
     Route: 065
  16. FOLIC ACID [Concomitant]
     Route: 065
  17. SYNTHROID [Concomitant]
     Route: 065
     Dates: start: 19650101
  18. CLARITIN [Concomitant]
     Route: 065
  19. PROSOM [Concomitant]
     Route: 065
  20. XANAX [Concomitant]
     Route: 065
  21. CENTRUM [Concomitant]
     Route: 065
  22. CITRACAL CAPLETS + D [Concomitant]
     Route: 065
  23. ASCORBIC ACID [Concomitant]
     Route: 065
  24. CYANOCOBALAMIN [Concomitant]
     Route: 065
  25. PREDNISONE [Concomitant]
     Route: 065
  26. VITAMIN E [Concomitant]
     Route: 065
  27. PYRIDOXINE [Concomitant]
     Route: 065
  28. ZINC (UNSPECIFIED) [Concomitant]
     Route: 065
  29. [THERAPY UNSPECIFIED] [Concomitant]
     Indication: RHEUMATOID ARTHRITIS
     Route: 065
     Dates: start: 19880101
  30. HORMONES (UNSPECIFIED) [Concomitant]
     Route: 065
     Dates: start: 19920101, end: 19950101
  31. CORTICOSTEROIDS (UNSPECIFIED) [Concomitant]
     Route: 065
     Dates: start: 19880101

REACTIONS (15)
  - ANGIOPATHY [None]
  - ANXIETY [None]
  - ARTHRITIS [None]
  - ASTHENIA [None]
  - DEPRESSION [None]
  - DIPLOPIA [None]
  - GASTROOESOPHAGEAL REFLUX DISEASE [None]
  - INTERVERTEBRAL DISC DEGENERATION [None]
  - JAW FRACTURE [None]
  - LUMBAR SPINAL STENOSIS [None]
  - NAUSEA [None]
  - OSTEOMYELITIS [None]
  - OSTEONECROSIS [None]
  - RASH [None]
  - SPONDYLOLISTHESIS [None]
